FAERS Safety Report 7338582-2 (Version None)
Quarter: 2011Q1

REPORT INFORMATION
  Report Type: 
  Country: None (occurrence: None)
  Receive Date: 20110210
  Receipt Date: 20101108
  Transmission Date: 20110831
  Serious: No
  Sender: FDA-Public Use
  Company Number: 1000017224

PATIENT
  Age: 63 Year
  Sex: Female

DRUGS (7)
  1. INDERAL (PROPRANOLOL) (PROPRANOLOL) [Concomitant]
  2. PROTONIX [Concomitant]
  3. KLONOPIN (CLONAZEPAM) (CLONAZEPAM) [Concomitant]
  4. SAVELLA [Suspect]
     Indication: FIBROMYALGIA
     Dosage: 12.5 MG (12.5 MG, 1 IN 1 D), ORAL, 25 MG (12.5 MG, 2 IN 1 D), ORAL, 50 MG (25 MG, 2 IN 1 D), ORAL
     Route: 048
  5. SAVELLA [Suspect]
     Indication: FIBROMYALGIA
     Dosage: 12.5 MG (12.5 MG, 1 IN 1 D), ORAL, 25 MG (12.5 MG, 2 IN 1 D), ORAL, 50 MG (25 MG, 2 IN 1 D), ORAL
     Route: 048
     Dates: start: 20100901
  6. SAVELLA [Suspect]
     Indication: FIBROMYALGIA
     Dosage: 100 MG (50 MG, 2 IN 1 D), ORAL
     Route: 048
     Dates: end: 20101001
  7. MEGARED (MEGARED) (MEGARED) [Concomitant]

REACTIONS (5)
  - DIARRHOEA [None]
  - URINARY TRACT INFECTION [None]
  - NAUSEA [None]
  - HYPERHIDROSIS [None]
  - ABDOMINAL PAIN UPPER [None]
